FAERS Safety Report 17640984 (Version 5)
Quarter: 2020Q4

REPORT INFORMATION
  Report Type: Spontaneous
  Country: US (occurrence: US)
  Receive Date: 20200407
  Receipt Date: 20201218
  Transmission Date: 20210113
  Serious: Yes (Hospitalization, Other)
  Sender: FDA-Public Use
  Company Number: US-PURDUE PHARMA-USA-2020-0151012

PATIENT
  Age: 59 Year
  Sex: Female
  Weight: 104.31 kg

DRUGS (5)
  1. DIAZEPAM. [Suspect]
     Active Substance: DIAZEPAM
     Indication: MENTAL DISORDER
     Dosage: 5 MG, UNK
     Route: 065
     Dates: end: 2011
  2. OXYCONTIN [Suspect]
     Active Substance: OXYCODONE HYDROCHLORIDE
     Indication: PRODUCT USED FOR UNKNOWN INDICATION
     Route: 048
  3. OXYCODONE HYDROCHLORIDE (SIMILAR TO NDA 22-272) [Suspect]
     Active Substance: OXYCODONE HYDROCHLORIDE
     Indication: PAIN IN EXTREMITY
     Dosage: 1 TABLET, Q3- 4H
     Route: 048
  4. OXYCODONE HYDROCHLORIDE (SIMILAR TO NDA 22-272) [Suspect]
     Active Substance: OXYCODONE HYDROCHLORIDE
     Dosage: 3.25 UNK, UNK
     Route: 048
  5. OXYCODONE/ ACETAMINOPHEN TABLETS [Suspect]
     Active Substance: ACETAMINOPHEN\OXYCODONE HYDROCHLORIDE
     Indication: PAIN
     Dosage: 5/325 MG
     Route: 048

REACTIONS (12)
  - Product prescribing error [Unknown]
  - Gout [Unknown]
  - Insomnia [Unknown]
  - Reading disorder [Unknown]
  - Mental disorder [Unknown]
  - Unevaluable event [Unknown]
  - Thrombosis [Unknown]
  - Drug withdrawal syndrome [Unknown]
  - Arthritis [Unknown]
  - Vomiting [Unknown]
  - Anxiety [Unknown]
  - Gait inability [Not Recovered/Not Resolved]

NARRATIVE: CASE EVENT DATE: 2011
